FAERS Safety Report 7676730-5 (Version None)
Quarter: 2011Q3

REPORT INFORMATION
  Report Type: 
  Country: None (occurrence: None)
  Receive Date: 20110811
  Receipt Date: 20110805
  Transmission Date: 20111222
  Serious: Yes (Hospitalization)
  Sender: FDA-Public Use
  Company Number: FR-BRISTOL-MYERS SQUIBB COMPANY-15955115

PATIENT
  Age: 75 Year
  Sex: Female
  Weight: 76 kg

DRUGS (12)
  1. NEXIUM [Concomitant]
     Dosage: 1DF=1 ENTERIC-COATED TABLET. 20 MG IS THE STRENGTH
     Route: 048
  2. HEPARIN CALCIUM [Concomitant]
     Indication: ATRIAL FIBRILLATION
  3. LANTUS [Concomitant]
     Indication: TYPE 1 DIABETES MELLITUS
     Route: 058
  4. ACETAMINOPHEN [Concomitant]
     Indication: PAIN
     Dates: end: 20110703
  5. CLONAZEPAM [Concomitant]
     Dosage: 2.5 MG/ML IS THE STRENGTH
     Route: 048
     Dates: end: 20110703
  6. PRAVASTATIN SODIUM [Concomitant]
     Route: 048
     Dates: start: 20110703, end: 20110712
  7. COUMADIN [Suspect]
     Indication: ATRIAL FIBRILLATION
     Route: 048
     Dates: start: 20110701, end: 20110701
  8. HUMALOG [Concomitant]
     Indication: TYPE 1 DIABETES MELLITUS
     Route: 058
  9. LASIX [Concomitant]
     Indication: HYPERTENSION
     Dosage: 500 MG IS THE STRENGTH 1DF=0.5 DIVISIBLE TABLET
  10. BISOPROLOL FUMARATE [Concomitant]
     Indication: HYPERTENSION
     Dosage: FILM-COATED TABLET
     Route: 048
  11. PAROXETINE HCL [Concomitant]
     Indication: DEPRESSION
     Dosage: 1DF=1 FILM-COATED TABLET. 20 MG IS THE STRENGTH
     Route: 048
     Dates: end: 20110703
  12. LOVENOX [Concomitant]
     Indication: ATRIAL FIBRILLATION
     Route: 048

REACTIONS (3)
  - INTERNATIONAL NORMALISED RATIO INCREASED [None]
  - FALL [None]
  - HAEMATOMA [None]
